FAERS Safety Report 23984755 (Version 1)
Quarter: 2024Q2

REPORT INFORMATION
  Report Type: Spontaneous
  Country: US (occurrence: US)
  Receive Date: 20240618
  Receipt Date: 20240618
  Transmission Date: 20240715
  Serious: No
  Sender: FDA-Public Use
  Company Number: US-IMP-2024000310

PATIENT
  Sex: Male

DRUGS (2)
  1. VEVYE [Suspect]
     Active Substance: CYCLOSPORINE
     Indication: Visual impairment
     Dosage: ONE DROP TO BOTH EYES TWICE A DAY
     Dates: start: 20240512, end: 20240520
  2. SYSTANE PF [Concomitant]
     Active Substance: POLYETHYLENE GLYCOL 400\PROPYLENE GLYCOL
     Indication: Product used for unknown indication
     Dosage: ONE-TWO DROPS TO BOTH EYES ONCE A DAY

REACTIONS (3)
  - Product administration error [Unknown]
  - Product use issue [Unknown]
  - Therapy interrupted [Unknown]

NARRATIVE: CASE EVENT DATE: 20240501
